FAERS Safety Report 8765282 (Version 2)
Quarter: 2013Q1

REPORT INFORMATION
  Report Type: Spontaneous
  Country: US (occurrence: US)
  Receive Date: 20120831
  Receipt Date: 20130327
  Transmission Date: 20140127
  Serious: Yes (Other)
  Sender: FDA-Public Use
  Company Number: US-ASTRAZENECA-2012SE64791

PATIENT
  Age: 59 Year
  Sex: Male
  Weight: 105.7 kg

DRUGS (1)
  1. TOPROL XL [Suspect]
     Indication: HYPERTENSION
     Route: 048

REACTIONS (3)
  - Craniocerebral injury [Unknown]
  - Injury [Unknown]
  - Physical assault [Unknown]
